FAERS Safety Report 16274642 (Version 1)
Quarter: 2019Q2

REPORT INFORMATION
  Report Type: Spontaneous
  Country: HU (occurrence: HU)
  Receive Date: 20190504
  Receipt Date: 20190504
  Transmission Date: 20190711
  Serious: Yes (Other)
  Sender: FDA-Public Use
  Company Number: PHHY2019HU098245

PATIENT
  Age: 1 Year

DRUGS (3)
  1. GENTAMYCIN [Concomitant]
     Active Substance: GENTAMICIN
     Indication: PSEUDOMONAS INFECTION
     Dosage: UNK
     Route: 065
  2. PIPERACILLIN. [Suspect]
     Active Substance: PIPERACILLIN SODIUM
     Indication: PSEUDOMONAS INFECTION
     Dosage: UNK
     Route: 065
  3. CEFTAZIDIME. [Concomitant]
     Active Substance: CEFTAZIDIME
     Indication: PSEUDOMONAS INFECTION
     Dosage: UNK
     Route: 065

REACTIONS (1)
  - Pathogen resistance [Recovered/Resolved]

NARRATIVE: CASE EVENT DATE: 2018
